FAERS Safety Report 14685455 (Version 3)
Quarter: 2018Q2

REPORT INFORMATION
  Report Type: Spontaneous
  Country: DE (occurrence: DE)
  Receive Date: 20180327
  Receipt Date: 20180501
  Transmission Date: 20180711
  Serious: Yes (Life-Threatening, Hospitalization, Other)
  Sender: FDA-Public Use
  Company Number: DE-AMGEN-DEUSP2018036404

PATIENT
  Age: 57 Year
  Sex: Male
  Weight: 75 kg

DRUGS (4)
  1. KYPROLIS [Suspect]
     Active Substance: CARFILZOMIB
     Indication: PLASMA CELL MYELOMA
     Dosage: 39 MG, UNK
     Route: 042
     Dates: start: 20171212, end: 20171213
  2. KYPROLIS [Suspect]
     Active Substance: CARFILZOMIB
     Dosage: 52 MG, DAY 1,2,8,9,15 IN SECOND CYCLE
     Route: 042
     Dates: start: 20180109, end: 20180123
  3. REVLIMID [Concomitant]
     Active Substance: LENALIDOMIDE
     Indication: PLASMA CELL MYELOMA
     Dosage: 15 MG, D1-21 EVERY 4 WEEKS
     Dates: start: 20171212, end: 20180123
  4. DEXAMETHASONE. [Concomitant]
     Active Substance: DEXAMETHASONE
     Indication: PLASMA CELL MYELOMA
     Dosage: UNK
     Dates: start: 20171212

REACTIONS (7)
  - Coronary artery disease [Unknown]
  - Infection [Unknown]
  - Hypokinesia [Unknown]
  - Cardiac failure [Unknown]
  - Lung consolidation [Unknown]
  - Pleural effusion [Unknown]
  - Feeling abnormal [Unknown]

NARRATIVE: CASE EVENT DATE: 20171219
